FAERS Safety Report 24787461 (Version 1)
Quarter: 2024Q4

REPORT INFORMATION
  Report Type: Spontaneous
  Country: US (occurrence: US)
  Receive Date: 20241230
  Receipt Date: 20241230
  Transmission Date: 20250115
  Serious: Yes (Other)
  Sender: CSL BEHRING
  Company Number: US-BEH-2024190360

PATIENT
  Sex: Female

DRUGS (5)
  1. HIZENTRA [Suspect]
     Active Substance: HUMAN IMMUNOGLOBULIN G
     Indication: Selective IgG subclass deficiency
     Dosage: 1 G (5 ML), QW(1GM/5 ML: TRANSFER 125 ML INTO THREE 50 ML SYRINGES. INFUSE 125 ML (25 GM))
     Route: 058
     Dates: start: 20241130
  2. HIZENTRA [Suspect]
     Active Substance: HUMAN IMMUNOGLOBULIN G
     Dosage: 4 G (20 ML), QW(4 GM/20 ML: TRANSFER 125 ML INTO THREE 50 ML SYRINGES. INFUSE 125 ML (25 GM))
     Route: 058
     Dates: start: 20241130
  3. HIZENTRA [Suspect]
     Active Substance: HUMAN IMMUNOGLOBULIN G
     Dosage: 10 G (50 ML), QW(10VGM/50 ML: TRANSFER 125 ML INTO THREE 50 ML SYRINGES. INFUSE 125 ML (25 GM))
     Route: 058
     Dates: start: 20241130
  4. EPINEPHRINE [Concomitant]
     Active Substance: EPINEPHRINE
     Dosage: 0.3 MG PEN (2=2);
  5. ONDANSETRON [Concomitant]
     Active Substance: ONDANSETRON
     Dosage: 8 MG

REACTIONS (2)
  - Drug ineffective [Unknown]
  - Abdominal pain upper [Unknown]
